FAERS Safety Report 16397918 (Version 1)
Quarter: 2019Q2

REPORT INFORMATION
  Report Type: Spontaneous
  Country: GB (occurrence: GB)
  Receive Date: 20190606
  Receipt Date: 20190606
  Transmission Date: 20190711
  Serious: Yes (Other)
  Sender: FDA-Public Use
  Company Number: GB-AUROBINDO-AUR-APL-2019-031341

PATIENT

DRUGS (5)
  1. CO-AMOXICLAV [Concomitant]
     Active Substance: AMOXICILLIN\CLAVULANATE POTASSIUM
     Indication: PRODUCT USED FOR UNKNOWN INDICATION
     Dosage: 3 DOSAGE FORM, DAILY (500/125MG)
     Route: 065
     Dates: start: 20181018
  2. METRONIDAZOLE. [Concomitant]
     Active Substance: METRONIDAZOLE
     Indication: PRODUCT USED FOR UNKNOWN INDICATION
     Dosage: UNK, STOP DATE 17-OCT-2016
     Route: 042
  3. METRONIDAZOLE TABLET [Suspect]
     Active Substance: METRONIDAZOLE
     Indication: INFECTION PROPHYLAXIS
     Dosage: 1200 MILLIGRAM, DAILY
     Route: 048
     Dates: start: 20161018
  4. CO-AMOXICLAV [Concomitant]
     Active Substance: AMOXICILLIN\CLAVULANATE POTASSIUM
     Indication: PRODUCT USED FOR UNKNOWN INDICATION
     Dosage: UNK, STOP DATE 17-OCT-2016
     Route: 042
  5. GANFORT [Concomitant]
     Active Substance: BIMATOPROST\TIMOLOL
     Indication: PRODUCT USED FOR UNKNOWN INDICATION
     Dosage: UNK (BOTH EYES)
     Route: 065

REACTIONS (19)
  - Nocturia [Recovered/Resolved]
  - Faeces discoloured [Recovered/Resolved]
  - Fatigue [Recovering/Resolving]
  - Dry mouth [Recovered/Resolved]
  - Vomiting [Recovered/Resolved]
  - Dysgeusia [Recovering/Resolving]
  - Eructation [Recovered/Resolved]
  - Abnormal faeces [Recovered/Resolved]
  - Vision blurred [Recovering/Resolving]
  - Mental impairment [Recovering/Resolving]
  - Faeces pale [Recovered/Resolved]
  - Dyspepsia [Recovered/Resolved]
  - Insomnia [Recovering/Resolving]
  - Parosmia [Recovering/Resolving]
  - Diarrhoea [Recovered/Resolved]
  - Nausea [Recovered/Resolved]
  - Peripheral swelling [Recovered/Resolved]
  - Urine flow decreased [Unknown]
  - Joint swelling [Recovered/Resolved]

NARRATIVE: CASE EVENT DATE: 20161018
